FAERS Safety Report 8053667-3 (Version None)
Quarter: 2012Q1

REPORT INFORMATION
  Report Type: 
  Country: None (occurrence: None)
  Receive Date: 20120118
  Receipt Date: 20120113
  Transmission Date: 20120608
  Serious: Yes (Other)
  Sender: FDA-Public Use
  Company Number: PHHO2012AU001027

PATIENT
  Sex: Female
  Weight: 72.9 kg

DRUGS (5)
  1. BLINDED NO TREATMENT RECEIVED [Suspect]
     Indication: RENAL TRANSPLANT
     Dosage: CODE NOT BROKEN
     Route: 048
     Dates: start: 20100827
  2. PREDNISONE TAB [Suspect]
     Indication: IMMUNOSUPPRESSION
     Dosage: 10 MG, QD
     Route: 048
     Dates: start: 20110727
  3. MYCOPHENOLIC ACID [Suspect]
     Indication: RENAL TRANSPLANT
     Dosage: CODE NOT BROKEN
     Route: 048
     Dates: start: 20100827
  4. PROGRAF [Suspect]
     Indication: RENAL TRANSPLANT
     Dosage: 1 MG, BID
     Route: 048
     Dates: start: 20110505
  5. BLINDED AEB071 [Suspect]
     Indication: RENAL TRANSPLANT
     Dosage: CODE NOT BROKEN
     Route: 048
     Dates: start: 20100827

REACTIONS (1)
  - CONCOMITANT DISEASE PROGRESSION [None]
